FAERS Safety Report 9378959 (Version 1)
Quarter: 2013Q3

REPORT INFORMATION
  Report Type: Spontaneous
  Country: HU (occurrence: HU)
  Receive Date: 20130702
  Receipt Date: 20130702
  Transmission Date: 20140515
  Serious: Yes (Other)
  Sender: FDA-Public Use
  Company Number: HU-ROCHE-1242812

PATIENT
  Sex: 0

DRUGS (10)
  1. RITUXIMAB [Suspect]
     Indication: DIFFUSE LARGE B-CELL LYMPHOMA
     Dosage: 2 WEEK TREATMENT
     Route: 065
  2. RITUXIMAB [Suspect]
     Dosage: 3 WEEK TREATMENT
     Route: 065
  3. PREDNISONE [Suspect]
     Indication: DIFFUSE LARGE B-CELL LYMPHOMA
     Dosage: 2 WEEK TREATMENT
     Route: 065
  4. PREDNISONE [Suspect]
     Dosage: 3 WEEK TREATMENT
     Route: 065
  5. CYCLOPHOSPHAMIDE [Suspect]
     Indication: DIFFUSE LARGE B-CELL LYMPHOMA
     Dosage: 2 WEEK TREATMENT
     Route: 065
  6. CYCLOPHOSPHAMIDE [Suspect]
     Dosage: 3 WEEK TREATMENT
     Route: 065
  7. DOXORUBICIN [Suspect]
     Indication: DIFFUSE LARGE B-CELL LYMPHOMA
     Dosage: 2 WEEK TREATMENT
     Route: 065
  8. DOXORUBICIN [Suspect]
     Dosage: 3 WEEK TREATMENT
     Route: 065
  9. VINCRISTINE [Suspect]
     Indication: DIFFUSE LARGE B-CELL LYMPHOMA
     Dosage: 2 WEEK TREATMENT
     Route: 065
  10. VINCRISTINE [Suspect]
     Dosage: 3 WEEK TREATMENT
     Route: 065

REACTIONS (1)
  - Bone marrow failure [Unknown]
